FAERS Safety Report 19052142 (Version 1)
Quarter: 2021Q1

REPORT INFORMATION
  Report Type: Spontaneous
  Country: BG (occurrence: BG)
  Receive Date: 20210324
  Receipt Date: 20210324
  Transmission Date: 20210420
  Serious: Yes (Hospitalization, Other)
  Sender: FDA-Public Use
  Company Number: NVSC2021BG054315

PATIENT
  Age: 72 Year
  Sex: Male

DRUGS (9)
  1. CARBOPLATIN. [Suspect]
     Active Substance: CARBOPLATIN
     Indication: SQUAMOUS CELL CARCINOMA
     Dosage: 75 MG/M2
     Route: 065
     Dates: start: 20210111, end: 20210111
  2. PACLITAXEL. [Suspect]
     Active Substance: PACLITAXEL
     Indication: SQUAMOUS CELL CARCINOMA
     Dosage: 200 MG/M2
     Route: 065
     Dates: start: 20210111, end: 20210111
  3. CARBOPLATIN. [Suspect]
     Active Substance: CARBOPLATIN
     Dosage: 75 MG/M2
     Route: 065
     Dates: start: 20210222, end: 20210222
  4. KEYTRUDA [Suspect]
     Active Substance: PEMBROLIZUMAB
     Dosage: 200 MG
     Route: 065
     Dates: start: 20210222
  5. CARBOPLATIN. [Suspect]
     Active Substance: CARBOPLATIN
     Dosage: 75 MG/M2
     Route: 065
     Dates: start: 20210201, end: 20210201
  6. PACLITAXEL. [Suspect]
     Active Substance: PACLITAXEL
     Dosage: 200 MG/M2
     Route: 065
     Dates: start: 20210201, end: 20210201
  7. PACLITAXEL. [Suspect]
     Active Substance: PACLITAXEL
     Dosage: 200 MG/M2
     Route: 065
     Dates: start: 20210222, end: 20210222
  8. KEYTRUDA [Suspect]
     Active Substance: PEMBROLIZUMAB
     Dosage: 200 MG
     Route: 065
     Dates: start: 20210201, end: 20210201
  9. KEYTRUDA [Suspect]
     Active Substance: PEMBROLIZUMAB
     Indication: SQUAMOUS CELL CARCINOMA
     Dosage: 200 MG
     Route: 065
     Dates: start: 20210111, end: 20210111

REACTIONS (9)
  - Decreased appetite [Unknown]
  - Hypervolaemia [Unknown]
  - Leukopenia [Recovered/Resolved]
  - Fatigue [Recovered/Resolved]
  - Chest pain [Recovered/Resolved]
  - Fatigue [Unknown]
  - Pyrexia [Unknown]
  - Pulmonary oedema [Unknown]
  - Cough [Recovered/Resolved]

NARRATIVE: CASE EVENT DATE: 202101
